FAERS Safety Report 8126859-2 (Version None)
Quarter: 2012Q1

REPORT INFORMATION
  Report Type: 
  Country: None (occurrence: None)
  Receive Date: 20120210
  Receipt Date: 20120203
  Transmission Date: 20120608
  Serious: Yes (Other)
  Sender: FDA-Public Use
  Company Number: US-PFIZER INC-2008154380

PATIENT
  Sex: Male

DRUGS (2)
  1. CAVERJECT [Suspect]
     Dosage: 40 UG, UNK
  2. CAVERJECT [Suspect]
     Dosage: 20 UG, UNK
     Dates: start: 20080101

REACTIONS (4)
  - TESTICULAR PAIN [None]
  - PEYRONIE'S DISEASE [None]
  - ERECTILE DYSFUNCTION [None]
  - DRUG INEFFECTIVE [None]
